FAERS Safety Report 9498364 (Version 3)
Quarter: 2013Q3

REPORT INFORMATION
  Report Type: Spontaneous
  Country: US (occurrence: US)
  Receive Date: 20130904
  Receipt Date: 20130926
  Transmission Date: 20140515
  Serious: Yes (Hospitalization)
  Sender: FDA-Public Use
  Company Number: US-INCYTE CORPORATION-2013IN001285

PATIENT
  Sex: Female

DRUGS (2)
  1. JAKAFI [Suspect]
     Indication: NEOPLASM MALIGNANT
     Dosage: 20 MG, BID
     Route: 048
  2. JAKAFI [Suspect]
     Dosage: 10 MG, BID
     Route: 048
     Dates: start: 20130218

REACTIONS (2)
  - Hospitalisation [Unknown]
  - Blood count abnormal [Unknown]
